FAERS Safety Report 11306549 (Version 3)
Quarter: 2015Q3

REPORT INFORMATION
  Report Type: Spontaneous
  Country: DE (occurrence: JP)
  Receive Date: 20150723
  Receipt Date: 20150813
  Transmission Date: 20151125
  Serious: Yes (Hospitalization)
  Sender: FDA-Public Use
  Company Number: JP-FRI-1000078448

PATIENT
  Age: 81 Year
  Sex: Female

DRUGS (12)
  1. ADONA [Suspect]
     Active Substance: CARBAZOCHROME SODIUM SULFONATE
     Dosage: 50 MG
     Route: 041
     Dates: start: 20150512, end: 20150516
  2. CELECOX [Concomitant]
     Active Substance: CELECOXIB
  3. PARLODEL [Concomitant]
     Active Substance: BROMOCRIPTINE MESYLATE
  4. OPALMON [Concomitant]
     Active Substance: LIMAPROST
  5. TRAZODONE [Concomitant]
     Active Substance: TRAZODONE HYDROCHLORIDE
  6. MEMANTINE. [Suspect]
     Active Substance: MEMANTINE
     Indication: DEMENTIA ALZHEIMER^S TYPE
     Dosage: 5 MG
     Route: 048
     Dates: start: 20150417, end: 20150423
  7. TRANSAMIN [Suspect]
     Active Substance: TRANEXAMIC ACID
     Indication: PRODUCT USED FOR UNKNOWN INDICATION
     Dosage: 10 ML
     Route: 041
     Dates: start: 20150512, end: 20150516
  8. MAGMITT [Concomitant]
     Active Substance: MAGNESIUM OXIDE
  9. COMTAN [Concomitant]
     Active Substance: ENTACAPONE
  10. AMOBAN [Concomitant]
     Active Substance: ZOPICLONE
  11. MADOPAR [Concomitant]
     Active Substance: BENSERAZIDE HYDROCHLORIDE\LEVODOPA
  12. MEMANTINE. [Suspect]
     Active Substance: MEMANTINE
     Dosage: 10 MG
     Route: 065
     Dates: start: 20150424, end: 20150515

REACTIONS (2)
  - Hepatic function abnormal [Recovering/Resolving]
  - Urinary bladder haemorrhage [Unknown]

NARRATIVE: CASE EVENT DATE: 20150511
